FAERS Safety Report 8784719 (Version 1)
Quarter: 2012Q4

REPORT INFORMATION
  Report Type: 
  Country: ES (occurrence: ES)
  Receive Date: 20120914
  Receipt Date: 20120914
  Transmission Date: 20130627
  Serious: Yes (Hospitalization)
  Sender: FDA-Public Use
  Company Number: ES-BAYER-2012-095422

PATIENT
  Age: 58 Year
  Sex: Male

DRUGS (4)
  1. ACETYLSALICYLIC ACID({=100 MG) [Suspect]
     Indication: ANTIPLATELET THERAPY
  2. ACETYLSALICYLIC ACID({=100 MG) [Suspect]
     Indication: ANTIPLATELET THERAPY
  3. CLOPIDOGREL [Suspect]
     Indication: ANTIPLATELET THERAPY
  4. CLOPIDOGREL [Suspect]
     Indication: ANTIPLATELET THERAPY

REACTIONS (6)
  - Autoimmune thrombocytopenia [Recovered/Resolved]
  - Skin haemorrhage [Recovered/Resolved]
  - Petechiae [Recovered/Resolved]
  - Mucosal haemorrhage [Recovered/Resolved]
  - Haemorrhagic anaemia [None]
  - Device occlusion [None]
